FAERS Safety Report 25629751 (Version 1)
Quarter: 2025Q3

REPORT INFORMATION
  Report Type: Spontaneous
  Country: EU (occurrence: EU)
  Receive Date: 20250731
  Receipt Date: 20250731
  Transmission Date: 20251020
  Serious: Yes (Hospitalization, Other)
  Sender: CELLTRION
  Company Number: None

PATIENT

DRUGS (8)
  1. INFLIXIMAB [Suspect]
     Active Substance: INFLIXIMAB
     Indication: Inflammatory bowel disease
     Route: 042
     Dates: start: 20240821, end: 20241017
  2. AZATHIOPRINE [Suspect]
     Active Substance: AZATHIOPRINE
     Indication: Inflammatory bowel disease
     Route: 048
     Dates: start: 20240821, end: 20241008
  3. CANNABIDIOL [Concomitant]
     Active Substance: CANNABIDIOL
  4. RIVOTRIL [Concomitant]
     Active Substance: CLONAZEPAM
  5. PHENOBARBITAL [Concomitant]
     Active Substance: PHENOBARBITAL
  6. CALCIUM CARBONATE [Concomitant]
     Active Substance: CALCIUM CARBONATE
  7. MELATONIN [Concomitant]
     Active Substance: MELATONIN
  8. PENTASA [Concomitant]
     Active Substance: MESALAMINE

REACTIONS (2)
  - Pancreatitis acute [Recovering/Resolving]
  - Anaphylactic shock [Recovered/Resolved]

NARRATIVE: CASE EVENT DATE: 20241005
